FAERS Safety Report 9297304 (Version 3)
Quarter: 2013Q2

REPORT INFORMATION
  Report Type: Report from Study
  Country: US (occurrence: US)
  Receive Date: 20130520
  Receipt Date: 20130524
  Transmission Date: 20140414
  Serious: Yes (Death)
  Sender: FDA-Public Use
  Company Number: US-ROCHE-1225417

PATIENT
  Sex: Male
  Weight: 99.43 kg

DRUGS (15)
  1. VALCYTE [Suspect]
     Indication: COMPLICATIONS OF TRANSPLANTED LUNG
     Route: 048
  2. LASIX [Concomitant]
     Dosage: AS NEEDED
     Route: 048
  3. IMURAN [Concomitant]
     Route: 048
  4. OS-CAL [Concomitant]
     Route: 065
  5. CHOLECALCIFEROL [Concomitant]
     Route: 048
  6. MYCELEX [Concomitant]
     Route: 048
  7. NEXIUM [Concomitant]
     Route: 048
  8. NOVOLOG [Concomitant]
     Route: 065
  9. MAG-OX [Concomitant]
     Route: 048
  10. LOPRESSOR [Concomitant]
     Route: 048
  11. LOVAZA [Concomitant]
     Route: 048
  12. DELTASONE [Concomitant]
     Route: 048
  13. ZOCOR [Concomitant]
     Route: 048
  14. SULFAMETHOXAZOLE/TRIMETHOPRIM [Concomitant]
     Dosage: 800-1600
     Route: 048
  15. PROGRAF [Concomitant]
     Route: 048

REACTIONS (1)
  - Acute myocardial infarction [Fatal]
